FAERS Safety Report 18817340 (Version 1)
Quarter: 2021Q1

REPORT INFORMATION
  Report Type: Report from Study
  Country: HN (occurrence: HN)
  Receive Date: 20210201
  Receipt Date: 20210201
  Transmission Date: 20210419
  Serious: Yes (Other)
  Sender: FDA-Public Use
  Company Number: NVSC2021HN016489

PATIENT
  Age: 84 Year
  Sex: Female

DRUGS (2)
  1. EXFORGE [Suspect]
     Active Substance: AMLODIPINE BESYLATE\VALSARTAN
     Indication: BLOOD PRESSURE ABNORMAL
     Dosage: 1 DF (160/5 MG)
     Route: 065
     Dates: start: 2020
  2. DIOVAN [Suspect]
     Active Substance: VALSARTAN
     Indication: PRODUCT USED FOR UNKNOWN INDICATION
     Dosage: 320 MG
     Route: 065

REACTIONS (9)
  - Feeling abnormal [Unknown]
  - Vision blurred [Unknown]
  - Blood pressure increased [Recovering/Resolving]
  - Angina unstable [Unknown]
  - Blood pressure inadequately controlled [Unknown]
  - Liver injury [Unknown]
  - Peripheral swelling [Unknown]
  - Drug ineffective [Unknown]
  - Extra dose administered [Unknown]
